FAERS Safety Report 4594625-0 (Version None)
Quarter: 2005Q1

REPORT INFORMATION
  Report Type: 
  Country: None (occurrence: None)
  Receive Date: 20050301
  Receipt Date: 20041108
  Transmission Date: 20050727
  Serious: No
  Sender: FDA-Public Use
  Company Number: US-BRISTOL-MYERS SQUIBB COMPANY-12759668

PATIENT
  Sex: Male
  Weight: 93 kg

DRUGS (5)
  1. ERBITUX [Suspect]
     Indication: COLON CANCER METASTATIC
     Dosage: 1ST DOSE 3/2004
     Route: 042
     Dates: start: 20040101, end: 20040101
  2. CAMPTOSAR [Concomitant]
     Indication: COLON CANCER METASTATIC
     Dosage: START DATE 3/2004
     Route: 042
     Dates: start: 20040101, end: 20040101
  3. ZOFRAN [Concomitant]
     Indication: PREMEDICATION
     Dates: start: 20040101, end: 20040101
  4. DECADRON [Concomitant]
     Indication: PREMEDICATION
     Dates: start: 20040101, end: 20040101
  5. BENADRYL [Concomitant]
     Indication: PREMEDICATION
     Dates: start: 20040101, end: 20040101

REACTIONS (1)
  - DRY SKIN [None]
